FAERS Safety Report 25765954 (Version 1)
Quarter: 2025Q3

REPORT INFORMATION
  Report Type: Spontaneous
  Country: US (occurrence: None)
  Receive Date: 20250904
  Receipt Date: 20250904
  Transmission Date: 20251020
  Serious: Yes (Hospitalization)
  Sender: FDA-CTU
  Company Number: None

PATIENT
  Sex: Male

DRUGS (2)
  1. GLEOSTINE [Suspect]
     Active Substance: LOMUSTINE
     Indication: Brain neoplasm malignant
     Route: 048
     Dates: start: 20250823
  2. MATULANE [Concomitant]
     Active Substance: PROCARBAZINE HYDROCHLORIDE

REACTIONS (4)
  - Acute kidney injury [None]
  - Constipation [None]
  - Decreased appetite [None]
  - Dysgeusia [None]
